FAERS Safety Report 9333672 (Version 1)
Quarter: 2013Q2

REPORT INFORMATION
  Report Type: Spontaneous
  Country: US (occurrence: US)
  Receive Date: 20130606
  Receipt Date: 20130606
  Transmission Date: 20140414
  Serious: No
  Sender: FDA-Public Use
  Company Number: US-AMGEN-USASP2012080570

PATIENT
  Age: 73 Year
  Sex: Female
  Weight: 83.45 kg

DRUGS (4)
  1. PROLIA [Suspect]
     Indication: OSTEOPOROSIS POSTMENOPAUSAL
     Dosage: 60 MG, Q6MO
     Route: 058
     Dates: start: 20120814, end: 20120814
  2. VESICARE [Concomitant]
     Indication: HYPERTONIC BLADDER
     Dosage: UNK
     Route: 048
     Dates: start: 20120626
  3. TEKTURNA [Concomitant]
     Indication: HYPERTENSION
     Dosage: 150 MG, QD
     Route: 048
  4. MYTREX [Concomitant]
     Indication: FUNGAL INFECTION
     Dosage: UNK UNK, PRN
     Route: 061

REACTIONS (8)
  - Escherichia urinary tract infection [Not Recovered/Not Resolved]
  - Nasopharyngitis [Recovered/Resolved]
  - Bladder disorder [Unknown]
  - Myalgia [Unknown]
  - Bladder prolapse [Unknown]
  - Blood creatinine abnormal [Unknown]
  - Muscle spasms [Not Recovered/Not Resolved]
  - Pain [Recovered/Resolved]
